FAERS Safety Report 11122150 (Version 1)
Quarter: 2015Q2

REPORT INFORMATION
  Report Type: Spontaneous
  Country: US (occurrence: None)
  Receive Date: 20150518
  Receipt Date: 20150518
  Transmission Date: 20150821
  Serious: No
  Sender: FDA-Public Use
  Company Number: None

PATIENT
  Age: 35 Year
  Sex: Female
  Weight: 85.28 kg

DRUGS (9)
  1. LANTUS/TOUJEO [Concomitant]
  2. MULTIPLE VITAMIN [Concomitant]
     Active Substance: VITAMINS
  3. TOUJEO [Suspect]
     Active Substance: INSULIN GLARGINE
     Dosage: 38 UNITS GIVEN INTO/UNDER THE SKIN
     Route: 058
     Dates: start: 20150503, end: 20150515
  4. LEVOTHYROXIN [Concomitant]
     Active Substance: LEVOTHYROXINE
  5. CALCIUM [Concomitant]
     Active Substance: CALCIUM
  6. VITAMIN D [Concomitant]
     Active Substance: CHOLECALCIFEROL
  7. VITAMIN C [Concomitant]
     Active Substance: ASCORBIC ACID
  8. HUMALOG [Concomitant]
     Active Substance: INSULIN LISPRO
  9. ENALAPRIL [Concomitant]
     Active Substance: ENALAPRIL

REACTIONS (4)
  - Drug ineffective [None]
  - Blood glucose increased [None]
  - Product quality issue [None]
  - Diabetes mellitus inadequate control [None]

NARRATIVE: CASE EVENT DATE: 20150503
